FAERS Safety Report 24379426 (Version 1)
Quarter: 2024Q3

REPORT INFORMATION
  Report Type: Spontaneous
  Country: JP (occurrence: JP)
  Receive Date: 20240930
  Receipt Date: 20240930
  Transmission Date: 20241016
  Serious: Yes (Other)
  Sender: JOHNSON AND JOHNSON
  Company Number: JP-JNJFOC-20240980331

PATIENT
  Age: 19 Year
  Sex: Female

DRUGS (2)
  1. HALOMONTH [Suspect]
     Active Substance: HALOPERIDOL DECANOATE
     Indication: Autism spectrum disorder
     Dosage: DOSE UNKNOWN
     Route: 030
  2. QUETIAPINE [Concomitant]
     Active Substance: QUETIAPINE
     Indication: Autism spectrum disorder
     Dosage: DOSE UNKNOWN
     Route: 048

REACTIONS (2)
  - Prolactin-producing pituitary tumour [Unknown]
  - Off label use [Unknown]
